FAERS Safety Report 9016710 (Version 1)
Quarter: 2013Q1

REPORT INFORMATION
  Report Type: Spontaneous
  Country: FR (occurrence: FR)
  Receive Date: 20130116
  Receipt Date: 20130116
  Transmission Date: 20140127
  Serious: Yes (Hospitalization)
  Sender: FDA-Public Use
  Company Number: FR-ABBOTT-13P-056-1036088-00

PATIENT
  Age: 78 Year
  Sex: Female

DRUGS (8)
  1. DEPAKOTE [Suspect]
     Indication: PRODUCT USED FOR UNKNOWN INDICATION
     Route: 048
     Dates: start: 2012, end: 20121205
  2. AMLOR [Concomitant]
     Indication: PRODUCT USED FOR UNKNOWN INDICATION
  3. DIFFU K [Concomitant]
     Indication: PRODUCT USED FOR UNKNOWN INDICATION
  4. RISPERDAL [Concomitant]
     Indication: PRODUCT USED FOR UNKNOWN INDICATION
  5. PHLOROGLUCINOL [Concomitant]
     Indication: PRODUCT USED FOR UNKNOWN INDICATION
  6. DOLIPRANE [Concomitant]
     Indication: PRODUCT USED FOR UNKNOWN INDICATION
  7. X-PREP (SENNA ALEXANDRINA LEAF) [Concomitant]
     Indication: PRODUCT USED FOR UNKNOWN INDICATION
  8. NORMACOL (RHAMNUS FRANGULA EXTRACT/STERCULIA URENS) [Concomitant]
     Indication: PRODUCT USED FOR UNKNOWN INDICATION

REACTIONS (2)
  - Hepatitis [Recovered/Resolved]
  - Thrombocytopenia [Recovered/Resolved]
